FAERS Safety Report 5586191-8 (Version None)
Quarter: 2008Q1

REPORT INFORMATION
  Report Type: 
  Country: None (occurrence: None)
  Receive Date: 20080107
  Receipt Date: 20080102
  Transmission Date: 20080703
  Serious: Yes (Other)
  Sender: FDA-Public Use
  Company Number: 2008000179

PATIENT
  Age: 14 Year
  Sex: Female
  Weight: 54.4316 kg

DRUGS (1)
  1. SUDAFED 12 HOUR [Suspect]
     Indication: SINUS DISORDER
     Dosage: 2 TABLETS, DAILY, ORAL
     Route: 048
     Dates: start: 20060101

REACTIONS (1)
  - DEPRESSION [None]
